FAERS Safety Report 9245738 (Version 1)
Quarter: 2013Q2

REPORT INFORMATION
  Report Type: Spontaneous
  Country: US (occurrence: US)
  Receive Date: 20130422
  Receipt Date: 20130422
  Transmission Date: 20140414
  Serious: No
  Sender: FDA-Public Use
  Company Number: US-B.I. PHARMACEUTICALS,INC./RIDGEFIELD-2013-BI-09378BP

PATIENT
  Age: 68 Year
  Sex: Male

DRUGS (7)
  1. AGGRENOX [Suspect]
     Indication: TRANSIENT ISCHAEMIC ATTACK
     Route: 048
     Dates: start: 201303, end: 20130403
  2. NOVOLOG [Concomitant]
     Route: 058
  3. LOSARTAN [Concomitant]
     Indication: HYPERTENSION
     Dosage: 50 MG
     Route: 048
  4. LANTUS [Concomitant]
     Route: 058
  5. LANSOPRAZOLE [Concomitant]
     Dosage: 30 MG
     Route: 048
  6. METFORMIN ER [Concomitant]
     Indication: DIABETES MELLITUS
     Dosage: 2000 MG
     Route: 048
  7. LEXAPRO [Concomitant]
     Dosage: 20 MG
     Route: 048

REACTIONS (3)
  - Headache [Recovered/Resolved]
  - Nausea [Recovered/Resolved]
  - Insomnia [Recovered/Resolved]
